FAERS Safety Report 6070995-1 (Version None)
Quarter: 2009Q1

REPORT INFORMATION
  Report Type: 
  Country: None (occurrence: None)
  Receive Date: 20090209
  Receipt Date: 20090205
  Transmission Date: 20090719
  Serious: Yes (Death, Hospitalization)
  Sender: FDA-Public Use
  Company Number: A0767495A

PATIENT
  Age: 75 Year
  Sex: Female
  Weight: 65 kg

DRUGS (4)
  1. SERETIDE [Suspect]
     Indication: ASTHMA
     Route: 055
     Dates: start: 20060101, end: 20081021
  2. INSULIN [Concomitant]
     Route: 058
     Dates: start: 19970101, end: 20081021
  3. BLOOD PRESSURE MEDICATION [Concomitant]
  4. ANTIDEPRESSANT (UNSPECIFIED) [Concomitant]

REACTIONS (1)
  - MULTI-ORGAN FAILURE [None]
